FAERS Safety Report 12663006 (Version 1)
Quarter: 2016Q3

REPORT INFORMATION
  Report Type: Spontaneous
  Country: US (occurrence: None)
  Receive Date: 20160817
  Receipt Date: 20160817
  Transmission Date: 20161109
  Serious: No
  Sender: FDA-Public Use
  Company Number: None

PATIENT

DRUGS (1)
  1. CAFFEINE + SODIUM BENZOATE [Suspect]
     Active Substance: CAFFEINE\SODIUM BENZOATE

REACTIONS (2)
  - Confusional state [None]
  - Product label confusion [None]

NARRATIVE: CASE EVENT DATE: 20160815
